FAERS Safety Report 21628656 (Version 1)
Quarter: 2022Q4

REPORT INFORMATION
  Report Type: Spontaneous
  Country: ES (occurrence: ES)
  Receive Date: 20221122
  Receipt Date: 20221122
  Transmission Date: 20230112
  Serious: Yes (Other)
  Sender: FDA-Public Use
  Company Number: None

PATIENT
  Sex: Female

DRUGS (1)
  1. LIDOCAINE [Suspect]
     Active Substance: LIDOCAINE
     Indication: Surgery
     Dosage: 20ML
     Dates: start: 20221102

REACTIONS (3)
  - Muscle rigidity [None]
  - Presyncope [None]
  - Syncope [None]

NARRATIVE: CASE EVENT DATE: 20221102
